FAERS Safety Report 23364527 (Version 2)
Quarter: 2024Q1

REPORT INFORMATION
  Report Type: Spontaneous
  Country: US (occurrence: US)
  Receive Date: 20240104
  Receipt Date: 20240216
  Transmission Date: 20240409
  Serious: Yes (Hospitalization)
  Sender: FDA-Public Use
  Company Number: US-BIOGEN-2024BI01243461

PATIENT
  Age: 63 Year
  Sex: Female

DRUGS (2)
  1. TYSABRI [Suspect]
     Active Substance: NATALIZUMAB
     Indication: Multiple sclerosis
     Route: 050
     Dates: start: 20190926
  2. TYRUKO [Suspect]
     Active Substance: NATALIZUMAB-SZTN
     Indication: Multiple sclerosis
     Route: 050

REACTIONS (3)
  - Lower limb fracture [Unknown]
  - Wrist fracture [Unknown]
  - Fall [Recovered/Resolved]

NARRATIVE: CASE EVENT DATE: 20231216
